FAERS Safety Report 18523549 (Version 3)
Quarter: 2021Q3

REPORT INFORMATION
  Report Type: Spontaneous
  Country: US (occurrence: US)
  Receive Date: 20201119
  Receipt Date: 20210906
  Transmission Date: 20211014
  Serious: Yes (Disabling, Other)
  Sender: FDA-Public Use
  Company Number: US-PURDUE-USA-2020-0166019

PATIENT
  Sex: Male

DRUGS (36)
  1. OXYCODONE HYDROCHLORIDE (SIMILAR TO NDA 22?272) [Suspect]
     Active Substance: OXYCODONE HYDROCHLORIDE
     Indication: PRODUCT USED FOR UNKNOWN INDICATION
     Dosage: UNKNOWN
     Route: 048
  2. HYDROCODONE BITARTRATE AND ACETAMINOPHEN [Suspect]
     Active Substance: ACETAMINOPHEN\HYDROCODONE BITARTRATE
     Dosage: 7.5/325MG, 1 TAB ORALLY 4 TIMES A DAY
     Route: 048
     Dates: start: 20140430, end: 20140704
  3. PALLADONE [Suspect]
     Active Substance: HYDROMORPHONE HYDROCHLORIDE
     Indication: ARTHRALGIA
     Dosage: UNKNOWN
     Route: 048
  4. TRAMADOL CR TABLETS (RHODES 21?745) [Suspect]
     Active Substance: TRAMADOL
     Dosage: 50 MG, TID
     Route: 048
     Dates: start: 20071119, end: 20090325
  5. RYZOLT [Suspect]
     Active Substance: TRAMADOL HYDROCHLORIDE
     Indication: ARTHRALGIA
     Dosage: UNKNOWN
     Route: 048
  6. HYDROMORPHONE HCL ORAL SOLUTION (RHODES) [Suspect]
     Active Substance: HYDROMORPHONE HYDROCHLORIDE
     Indication: ARTHRALGIA
     Dosage: UNKNOWN
     Route: 048
  7. HYDROCODONE BITARTRATE AND ACETAMINOPHEN [Suspect]
     Active Substance: ACETAMINOPHEN\HYDROCODONE BITARTRATE
     Dosage: 7.5?325 MG TID
     Route: 048
     Dates: start: 20061216, end: 20110908
  8. HYDROCODONE BITARTRATE AND ACETAMINOPHEN [Suspect]
     Active Substance: ACETAMINOPHEN\HYDROCODONE BITARTRATE
     Dosage: 7.5?325 MG TID PRN
     Route: 048
     Dates: start: 20130518, end: 20130531
  9. HYDROCODONE BITARTRATE AND ACETAMINOPHEN [Suspect]
     Active Substance: ACETAMINOPHEN\HYDROCODONE BITARTRATE
     Dosage: 5/325MG, 1 TAB ORALLY 4 TIMES A DAY PRN
     Route: 048
     Dates: start: 20140206, end: 20140319
  10. OXYCODONE/ ACETAMINOPHEN TABLETS [Suspect]
     Active Substance: ACETAMINOPHEN\OXYCODONE HYDROCHLORIDE
     Indication: ARTHRALGIA
     Dosage: UNKNOWN
     Route: 048
  11. PERCOCET                           /00446701/ [Concomitant]
     Active Substance: ACETAMINOPHEN\OXYCODONE HYDROCHLORIDE\OXYCODONE TEREPHTHALATE
     Dosage: 5?325 MG 2?3 TIMES A DAY
     Route: 065
     Dates: start: 20061213, end: 20061216
  12. OXYCODONE HYDROCHLORIDE (SIMILAR TO NDA 22?272) [Suspect]
     Active Substance: OXYCODONE HYDROCHLORIDE
     Dosage: 5?10 MG
     Route: 048
  13. DILAUDID [Suspect]
     Active Substance: HYDROMORPHONE HYDROCHLORIDE
     Indication: ARTHRALGIA
     Dosage: UNKNOWN
     Route: 048
  14. HYDROCODONE BITARTRATE AND ACETAMINOPHEN [Suspect]
     Active Substance: ACETAMINOPHEN\HYDROCODONE BITARTRATE
     Dosage: 7.5?325 MG TID PRN
     Route: 048
     Dates: start: 20121102, end: 20121201
  15. OXYCODONE HCL CR TABLETS (SIMILAR TO NDA 22?272) [Suspect]
     Active Substance: OXYCODONE HYDROCHLORIDE
     Indication: ARTHRALGIA
     Dosage: UNKNOWN
     Route: 048
  16. HYDROMORPHONE TABLET (RHODES) [Suspect]
     Active Substance: HYDROMORPHONE
     Indication: ARTHRALGIA
     Dosage: UNKNOWN
     Route: 048
  17. MS CONTIN [Suspect]
     Active Substance: MORPHINE SULFATE
     Indication: ARTHRALGIA
     Dosage: UNKNOWN
     Route: 048
  18. HYDROCODONE BITARTRATE (SIMILAR TO NDA 206627) [Suspect]
     Active Substance: HYDROCODONE BITARTRATE
     Indication: PRODUCT USED FOR UNKNOWN INDICATION
     Dosage: UNKNOWN
     Route: 048
  19. HYDROCODONE BITARTRATE AND ACETAMINOPHEN [Suspect]
     Active Substance: ACETAMINOPHEN\HYDROCODONE BITARTRATE
     Dosage: 7.5?325 MG TID PRN
     Route: 048
     Dates: start: 20130405, end: 20130415
  20. HYDROCODONE BITARTRATE AND ACETAMINOPHEN [Suspect]
     Active Substance: ACETAMINOPHEN\HYDROCODONE BITARTRATE
     Dosage: 5?325 MG 1?2 TABS Q4H
     Route: 048
     Dates: start: 20130919, end: 20130925
  21. HYDROCODONE BITARTRATE AND ACETAMINOPHEN [Suspect]
     Active Substance: ACETAMINOPHEN\HYDROCODONE BITARTRATE
     Dosage: 5?325 MG BID
     Route: 048
     Dates: start: 20130925, end: 20140304
  22. HYDROCODONE BITARTRATE AND ACETAMINOPHEN [Suspect]
     Active Substance: ACETAMINOPHEN\HYDROCODONE BITARTRATE
     Dosage: 5/325MG, 1 TAB ORALLY 3 TIMES A DAY
     Route: 048
     Dates: start: 20140305, end: 20140312
  23. PERCOCET                           /00446701/ [Concomitant]
     Active Substance: ACETAMINOPHEN\OXYCODONE HYDROCHLORIDE\OXYCODONE TEREPHTHALATE
     Indication: NEPHROLITHIASIS
     Dosage: 10 MG, PRN
     Route: 065
     Dates: start: 20040709
  24. OXYCODONE HCL TABLETS (RHODES 91?490) [Suspect]
     Active Substance: OXYCODONE HYDROCHLORIDE
     Indication: ARTHRALGIA
     Dosage: UNKNOWN
     Route: 048
  25. HYDROCODONE BITARTRATE AND ACETAMINOPHEN [Suspect]
     Active Substance: ACETAMINOPHEN\HYDROCODONE BITARTRATE
     Dosage: 5?325 MG, QID
     Route: 048
  26. OXY IR [Suspect]
     Active Substance: OXYCODONE HYDROCHLORIDE
     Indication: ARTHRALGIA
     Dosage: UNKNOWN
     Route: 065
  27. TRAMADOL CR TABLETS (RHODES 21?745) [Suspect]
     Active Substance: TRAMADOL
     Indication: ARTHRALGIA
     Dosage: 501 MG, UNKNOWN
     Route: 048
  28. OXYCODONE HYDROCHLORIDE (SIMILAR TO NDA 22?272) [Suspect]
     Active Substance: OXYCODONE HYDROCHLORIDE
     Dosage: 5 MG, Q8H
     Route: 048
     Dates: start: 20110721, end: 20140828
  29. HYDROCODONE BITARTRATE AND ACETAMINOPHEN [Suspect]
     Active Substance: ACETAMINOPHEN\HYDROCODONE BITARTRATE
     Dosage: 7.5/325MG, 1 TAB ORALLY 2 TIMES A DAY PRN
     Route: 048
     Dates: start: 20131106, end: 20131228
  30. OXYFAST [Suspect]
     Active Substance: OXYCODONE
     Indication: ARTHRALGIA
     Dosage: UNKNOWN
     Route: 048
  31. TRAMADOL CR TABLETS (RHODES 21?745) [Suspect]
     Active Substance: TRAMADOL
     Dosage: 5?10 MG
     Route: 048
     Dates: start: 1999
  32. OXYCONTIN [Suspect]
     Active Substance: OXYCODONE HYDROCHLORIDE
     Indication: ARTHRALGIA
     Dosage: UNKNOWN
     Route: 048
  33. HYDROMORPHONE HCL (SIMILAR TO 19?892) [Suspect]
     Active Substance: HYDROMORPHONE HYDROCHLORIDE
     Indication: PRODUCT USED FOR UNKNOWN INDICATION
     Dosage: UNKNOWN
     Route: 048
  34. MORPHINE SULFATE EXTENDED?RELEASE TABLETS (RHODES 74?769, 74?862) [Suspect]
     Active Substance: MORPHINE SULFATE
     Indication: ARTHRALGIA
     Dosage: UNKNOWN
     Route: 048
  35. HYDROCODONE BITARTRATE AND ACETAMINOPHEN [Suspect]
     Active Substance: ACETAMINOPHEN\HYDROCODONE BITARTRATE
     Indication: ARTHRALGIA
     Dosage: 7.5?325 MG, BID
     Route: 048
  36. HYDROCODONE BITARTRATE AND ACETAMINOPHEN [Suspect]
     Active Substance: ACETAMINOPHEN\HYDROCODONE BITARTRATE
     Dosage: 7.5/325MG, 1 TAB ORALLY EVERY 4
     Route: 048
     Dates: start: 20140415, end: 20170410

REACTIONS (5)
  - Suicidal ideation [Unknown]
  - Overdose [Unknown]
  - Depression [Unknown]
  - Drug dependence [Not Recovered/Not Resolved]
  - Drug abuse [Unknown]

NARRATIVE: CASE EVENT DATE: 2000
